FAERS Safety Report 16760755 (Version 2)
Quarter: 2019Q3

REPORT INFORMATION
  Report Type: Spontaneous
  Country: JP (occurrence: JP)
  Receive Date: 20190830
  Receipt Date: 20190913
  Transmission Date: 20191005
  Serious: Yes (Death, Hospitalization, Other)
  Sender: FDA-Public Use
  Company Number: JP-009507513-1908JPN002922J

PATIENT
  Age: 62 Year
  Sex: Male

DRUGS (6)
  1. ASPARA POTASSIUM [Concomitant]
     Active Substance: POTASSIUM ASPARTATE
     Dosage: 3 DOSAGE FORM
     Route: 048
  2. ESOMEPRAZOLE. [Concomitant]
     Active Substance: ESOMEPRAZOLE MAGNESIUM
     Dosage: 1 DOSAGE FORM
     Route: 048
  3. ISOLEUCINE (+) LEUCINE (+) VALINE [Concomitant]
     Dosage: 3 DOSAGE FORM
     Route: 048
  4. NU-LOTAN TABLETS 50MG [Suspect]
     Active Substance: LOSARTAN
     Dosage: 75 MILLIGRAM
     Route: 048
     Dates: start: 20160315
  5. URSODEOXYCHOLIC ACID [Concomitant]
     Active Substance: URSODIOL
     Dosage: 3 DOSAGE FORM
     Route: 048
  6. SULFAMETHOXAZOLE (+) TRIMETHOPRIM [Concomitant]
     Active Substance: SULFAMETHOXAZOLE\TRIMETHOPRIM
     Dosage: 1 DOSAGE FORM, MONDAY, WEDNESDAY, FRIDAY
     Route: 048

REACTIONS (2)
  - Non-cirrhotic portal hypertension [Fatal]
  - Dermatomyositis [Unknown]

NARRATIVE: CASE EVENT DATE: 2017
